FAERS Safety Report 7268833-4 (Version None)
Quarter: 2011Q1

REPORT INFORMATION
  Report Type: 
  Country: None (occurrence: None)
  Receive Date: 20110201
  Receipt Date: 20110120
  Transmission Date: 20110831
  Serious: Yes (Other)
  Sender: FDA-Public Use
  Company Number: UY-PFIZER INC-2011019814

PATIENT
  Age: 11 Year
  Sex: Male
  Weight: 28.4 kg

DRUGS (2)
  1. GENOTROPIN [Suspect]
     Indication: GROWTH HORMONE DEFICIENCY
     Dosage: 0.5 MG/KG, 1X/DAY
     Route: 030
     Dates: start: 20090129
  2. SUPRADYN [Concomitant]
     Dosage: UNK
     Route: 048

REACTIONS (5)
  - HEADACHE [None]
  - BONE PAIN [None]
  - INCORRECT ROUTE OF DRUG ADMINISTRATION [None]
  - HYPOGLYCAEMIA [None]
  - MUSCULOSKELETAL STIFFNESS [None]
